FAERS Safety Report 7242067-1 (Version None)
Quarter: 2011Q1

REPORT INFORMATION
  Report Type: 
  Country: None (occurrence: None)
  Receive Date: 20110124
  Receipt Date: 20110118
  Transmission Date: 20110831
  Serious: Yes (Death, Hospitalization, Other)
  Sender: FDA-Public Use
  Company Number: PHHY2010DE02374

PATIENT
  Sex: Female

DRUGS (22)
  1. BUPRENORPHINE [Concomitant]
     Dosage: UNK
     Route: 062
     Dates: start: 20080122
  2. CIPROFLOXACIN [Concomitant]
     Dosage: 500 MG, UNK
     Route: 048
     Dates: start: 20080211, end: 20080226
  3. ROXITHROMYCIN [Concomitant]
     Dosage: UNK
     Dates: start: 20080415
  4. MOVICOL [Concomitant]
     Dosage: UNK
     Dates: start: 20080516
  5. METOPROLOL [Concomitant]
     Indication: HYPERTENSION
     Dosage: 95 MG, UNK
     Route: 048
     Dates: start: 20090107
  6. AMN107 [Suspect]
     Dosage: 342.86 MG, DAILY
     Route: 048
     Dates: start: 20090520, end: 20090610
  7. ZINC [Concomitant]
     Dosage: UNK
     Dates: start: 20080721
  8. AMN107 [Suspect]
     Dosage: 114.8 MG, DAILY
     Route: 048
     Dates: start: 20080626, end: 20080703
  9. AMN107 [Suspect]
     Dosage: 400 MG, DAILY
     Route: 048
     Dates: start: 20080123, end: 20080212
  10. AMN107 [Suspect]
     Dosage: 200 MG, DAILY
     Route: 048
     Dates: start: 20080213, end: 20080215
  11. AMN107 [Suspect]
     Dosage: 142.9 MG, DAILY
     Route: 048
     Dates: start: 20080827
  12. BLOOD TRANSFUSION, AUXILIARY PRODUCTS [Concomitant]
     Indication: ANAEMIA
     Dosage: UNK
  13. LEVOCETIRIZINE DIHYDROCHLORIDE [Concomitant]
     Dosage: UNK
     Dates: start: 20080514
  14. ALLOPURINOL [Concomitant]
     Dosage: 150 MG, DAILY
     Dates: start: 20081111
  15. UBRETID [Concomitant]
     Dosage: 5 MG, UNK
     Dates: start: 20081101
  16. CIMICIFUGA [Concomitant]
     Dosage: UNK
     Dates: start: 20081111
  17. DAIVOBET [Concomitant]
     Indication: DERMATITIS ALLERGIC
     Dosage: UNK
     Dates: start: 20090201
  18. AMN107 [Suspect]
     Indication: CHRONIC MYELOID LEUKAEMIA
     Dosage: 800 MG, UNK
     Route: 048
     Dates: start: 20080115, end: 20080123
  19. AMN107 [Suspect]
     Dosage: 200 MG, DAILY
     Route: 048
     Dates: start: 20080618, end: 20080625
  20. IBUPROFEN [Concomitant]
     Dosage: UNK
     Route: 048
     Dates: start: 20080129
  21. AMPHOTERICIN B [Concomitant]
     Dosage: UNK
     Dates: start: 20080215
  22. ONDANSETRON [Concomitant]
     Indication: NAUSEA
     Dosage: 4 MG, DAILY
     Route: 048
     Dates: start: 20081203

REACTIONS (21)
  - BRONCHITIS [None]
  - UTERINE DISORDER [None]
  - TONSILLITIS [None]
  - GASTROENTERITIS [None]
  - ANAEMIA [None]
  - PAIN [None]
  - MUSCULAR WEAKNESS [None]
  - ASTHENIA [None]
  - TACHYCARDIA [None]
  - PERITONSILLAR ABSCESS [None]
  - URINARY TRACT INFECTION [None]
  - BLAST CRISIS IN MYELOGENOUS LEUKAEMIA [None]
  - MUCOSAL INFLAMMATION [None]
  - THROMBOCYTOPENIA [None]
  - NECK PAIN [None]
  - DRUG RESISTANCE [None]
  - BACK PAIN [None]
  - ARTHRALGIA [None]
  - SWEAT GLAND DISORDER [None]
  - DYSPNOEA EXERTIONAL [None]
  - NASOPHARYNGITIS [None]
